FAERS Safety Report 10616614 (Version 1)
Quarter: 2014Q4

REPORT INFORMATION
  Report Type: Spontaneous
  Country: US (occurrence: None)
  Receive Date: 20141126
  Receipt Date: 20141126
  Transmission Date: 20150529
  Serious: No
  Sender: FDA-Public Use
  Company Number: None

PATIENT
  Age: 55 Year
  Sex: Female
  Weight: 85.9 kg

DRUGS (1)
  1. LATANOPROST. [Suspect]
     Active Substance: LATANOPROST
     Indication: GLAUCOMA
     Dosage: 1 DROPS AT BEDTIME EYE
     Dates: start: 20140502, end: 20141112

REACTIONS (1)
  - Conjunctival hyperaemia [None]

NARRATIVE: CASE EVENT DATE: 20141112
